FAERS Safety Report 16851797 (Version 1)
Quarter: 2019Q3

REPORT INFORMATION
  Report Type: Spontaneous
  Country: US (occurrence: US)
  Receive Date: 20190925
  Receipt Date: 20190925
  Transmission Date: 20191005
  Serious: Yes (Hospitalization)
  Sender: FDA-Public Use
  Company Number: US-UNITED THERAPEUTICS-UNT-2019-015581

PATIENT
  Age: 65 Year
  Sex: Female

DRUGS (1)
  1. REMODULIN [Suspect]
     Active Substance: TREPROSTINIL
     Indication: PULMONARY ARTERIAL HYPERTENSION
     Dosage: 0.008 ?G/KG, CONTINUING
     Route: 041
     Dates: start: 20190913

REACTIONS (8)
  - Musculoskeletal pain [Unknown]
  - Insomnia [Unknown]
  - Pulmonary oedema [Unknown]
  - Dermatitis contact [Unknown]
  - Cough [Recovering/Resolving]
  - Muscle spasms [Unknown]
  - Pain [Unknown]
  - Fatigue [Not Recovered/Not Resolved]

NARRATIVE: CASE EVENT DATE: 201909
